FAERS Safety Report 23531332 (Version 1)
Quarter: 2024Q1

REPORT INFORMATION
  Report Type: Spontaneous
  Country: US (occurrence: US)
  Receive Date: 20240216
  Receipt Date: 20240216
  Transmission Date: 20240409
  Serious: No
  Sender: FDA-Public Use
  Company Number: US-Pharmaand-2023001382

PATIENT
  Sex: Male

DRUGS (1)
  1. RUBRACA [Suspect]
     Active Substance: RUCAPARIB CAMSYLATE
     Indication: Prostate cancer
     Dosage: 600 MG TWICE DAILY
     Route: 048
     Dates: start: 20230418, end: 20231017

REACTIONS (2)
  - Drug intolerance [Unknown]
  - Illness [Unknown]
